FAERS Safety Report 22304568 (Version 2)
Quarter: 2023Q2

REPORT INFORMATION
  Report Type: Spontaneous
  Country: US (occurrence: US)
  Receive Date: 20230510
  Receipt Date: 20230522
  Transmission Date: 20230722
  Serious: No
  Sender: FDA-Public Use
  Company Number: US-LUPIN PHARMACEUTICALS INC.-2023-03557

PATIENT

DRUGS (1)
  1. ALBUTEROL SULFATE [Suspect]
     Active Substance: ALBUTEROL SULFATE
     Indication: Chronic respiratory disease
     Dosage: UNK
     Dates: start: 20230427

REACTIONS (3)
  - Product use in unapproved indication [Unknown]
  - Device delivery system issue [Unknown]
  - Drug dose omission by device [Unknown]
